FAERS Safety Report 5235125-4 (Version None)
Quarter: 2007Q1

REPORT INFORMATION
  Report Type: 
  Country: None (occurrence: None)
  Receive Date: 20070207
  Receipt Date: 20070131
  Transmission Date: 20070707
  Serious: Yes (Hospitalization, Other)
  Sender: FDA-Public Use
  Company Number: 2007SP000066

PATIENT
  Age: 34 Year
  Sex: Male
  Weight: 63 kg

DRUGS (3)
  1. PEG-INTRON [Suspect]
     Indication: HEPATITIS C
     Dosage: 100 MCG; QW; SC
     Route: 058
     Dates: start: 20061022, end: 20061217
  2. NIMED (NIMESULIDE) (NIMESULIDE) [Suspect]
     Indication: MYALGIA
     Dosage: 100 MG; ONCE; PO
     Route: 048
     Dates: start: 20061215, end: 20061215
  3. CITALOPRAM (CON.) [Concomitant]

REACTIONS (4)
  - AUTOIMMUNE HEPATITIS [None]
  - DEPRESSION [None]
  - GASTROOESOPHAGEAL REFLUX DISEASE [None]
  - MYALGIA [None]
